FAERS Safety Report 6657188-1 (Version None)
Quarter: 2010Q1

REPORT INFORMATION
  Report Type: 
  Country: None (occurrence: None)
  Receive Date: 20100330
  Receipt Date: 20100322
  Transmission Date: 20100710
  Serious: Yes (Hospitalization)
  Sender: FDA-Public Use
  Company Number: HU-EISAI INC.-E2090-01118-CLI-HU

PATIENT
  Sex: Male
  Weight: 72 kg

DRUGS (10)
  1. CARBAMAZEPINE [Suspect]
     Indication: EPILEPSY
     Route: 048
     Dates: start: 20090309, end: 20090301
  2. CARBAMAZEPINE [Suspect]
     Route: 048
     Dates: start: 20090323, end: 20090301
  3. CARBAMAZEPINE [Suspect]
     Route: 048
     Dates: start: 20090406, end: 20100322
  4. ASPIRIN [Concomitant]
     Route: 048
     Dates: start: 20090325
  5. VALSARTAN [Concomitant]
     Indication: HYPERTENSION
     Route: 048
     Dates: start: 20090325
  6. HYDROCHLOROTHIAZIDE [Concomitant]
     Indication: HYPERTENSION
     Route: 048
     Dates: start: 20090325
  7. DILTIAZEM HCL [Concomitant]
     Indication: HYPERTENSION
     Route: 048
     Dates: start: 20090325
  8. NEBIVOLOL HCL [Concomitant]
     Route: 048
     Dates: start: 20090325
  9. TRIMETAZIDINE [Concomitant]
     Route: 048
     Dates: start: 20090325
  10. ROSUVASTATIN [Concomitant]
     Route: 048
     Dates: start: 20090325

REACTIONS (2)
  - GASTRIC ULCER [None]
  - LIVER DISORDER [None]
